FAERS Safety Report 24616990 (Version 1)
Quarter: 2024Q4

REPORT INFORMATION
  Report Type: Spontaneous
  Country: CA (occurrence: CA)
  Receive Date: 20241114
  Receipt Date: 20241114
  Transmission Date: 20250115
  Serious: Yes (Hospitalization, Disabling, Other)
  Sender: JOHNSON AND JOHNSON
  Company Number: CA-JNJFOC-20241129691

PATIENT
  Age: 73 Year
  Sex: Female
  Weight: 81 kg

DRUGS (2)
  1. SPORANOX [Interacting]
     Active Substance: ITRACONAZOLE
     Indication: Onychomycosis
     Route: 065
  2. ASMANEX [Suspect]
     Active Substance: MOMETASONE FUROATE
     Indication: Chronic obstructive pulmonary disease
     Route: 055

REACTIONS (5)
  - Cushing^s syndrome [Recovering/Resolving]
  - Diabetes mellitus [Recovering/Resolving]
  - Adrenal insufficiency [Recovering/Resolving]
  - Drug interaction [Recovering/Resolving]
  - Inhibitory drug interaction [Unknown]
